FAERS Safety Report 22284834 (Version 1)
Quarter: 2023Q2

REPORT INFORMATION
  Report Type: Spontaneous
  Country: US (occurrence: None)
  Receive Date: 20230503
  Receipt Date: 20230503
  Transmission Date: 20230721
  Serious: Yes (Other)
  Sender: FDA-Public Use
  Company Number: None

PATIENT
  Age: 76 Year
  Sex: Female

DRUGS (3)
  1. COGENTIN [Suspect]
     Active Substance: BENZTROPINE MESYLATE
     Route: 048
  2. FARXIGA [Concomitant]
     Active Substance: DAPAGLIFLOZIN PROPANEDIOL
  3. BUSPAR [Concomitant]
     Active Substance: BUSPIRONE HYDROCHLORIDE

REACTIONS (14)
  - Confusional state [None]
  - Delusion [None]
  - Hallucinations, mixed [None]
  - Abnormal behaviour [None]
  - Infection [None]
  - Oral mucosal blistering [None]
  - Amnesia [None]
  - Dysstasia [None]
  - Urinary tract infection [None]
  - Nervous system disorder [None]
  - Cough [None]
  - Dyspnoea [None]
  - Chest pain [None]
  - Gastric disorder [None]

NARRATIVE: CASE EVENT DATE: 20230422
